FAERS Safety Report 4458071-2 (Version None)
Quarter: 2004Q3

REPORT INFORMATION
  Report Type: 
  Country: None (occurrence: None)
  Receive Date: 20040922
  Receipt Date: 20040812
  Transmission Date: 20050211
  Serious: No
  Sender: FDA-Public Use
  Company Number: A02200402511

PATIENT
  Age: 62 Year
  Sex: Female

DRUGS (2)
  1. PLAQUENIL [Suspect]
     Indication: SARCOIDOSIS
     Dosage: 400 MG QD
     Route: 048
     Dates: start: 20040701
  2. PREDNISONE [Concomitant]

REACTIONS (1)
  - VESTIBULAR NEURONITIS [None]
